FAERS Safety Report 7121894-5 (Version None)
Quarter: 2010Q4

REPORT INFORMATION
  Report Type: 
  Country: None (occurrence: None)
  Receive Date: 20101124
  Receipt Date: 20101120
  Transmission Date: 20110411
  Serious: Yes (Life-Threatening, Hospitalization)
  Sender: FDA-Public Use
  Company Number: ZA-ROCHE-743515

PATIENT
  Sex: Female

DRUGS (3)
  1. CEFTRIAXONE [Suspect]
     Route: 065
  2. HERCEPTIN [Suspect]
     Route: 065
  3. PACLITAXEL [Concomitant]

REACTIONS (2)
  - DYSPNOEA [None]
  - PNEUMONIA [None]
